FAERS Safety Report 15965097 (Version 1)
Quarter: 2019Q1

REPORT INFORMATION
  Report Type: Spontaneous
  Country: US (occurrence: US)
  Receive Date: 20190215
  Receipt Date: 20190215
  Transmission Date: 20190418
  Serious: Yes (Other)
  Sender: FDA-Public Use
  Company Number: US-LUPIN PHARMACEUTICALS INC.-2019-00778

PATIENT
  Age: 84 Year
  Sex: Female
  Weight: 59.86 kg

DRUGS (2)
  1. CEFTRIAXONE FOR INJECTION USP, 1 G [Suspect]
     Active Substance: CEFTRIAXONE
     Indication: URINARY TRACT INFECTION
     Dosage: 1 GRAM QD FOR 1 WEEK
     Route: 030
     Dates: start: 20180819
  2. CEFTRIAXONE FOR INJECTION USP, 1 G [Suspect]
     Active Substance: CEFTRIAXONE
     Dosage: UNK
     Route: 030
     Dates: start: 201810

REACTIONS (10)
  - Headache [Not Recovered/Not Resolved]
  - Amnesia [Not Recovered/Not Resolved]
  - Decreased appetite [Not Recovered/Not Resolved]
  - Pneumonia [Recovered/Resolved]
  - Nausea [Not Recovered/Not Resolved]
  - Dizziness [Not Recovered/Not Resolved]
  - Cough [Not Recovered/Not Resolved]
  - Decubitus ulcer [Not Recovered/Not Resolved]
  - Weight decreased [Unknown]
  - Catatonia [Not Recovered/Not Resolved]

NARRATIVE: CASE EVENT DATE: 20180822
